FAERS Safety Report 5465931-2 (Version None)
Quarter: 2007Q3

REPORT INFORMATION
  Report Type: 
  Country: None (occurrence: None)
  Receive Date: 20070924
  Receipt Date: 20070910
  Transmission Date: 20080115
  Serious: Yes (Hospitalization)
  Sender: FDA-Public Use
  Company Number: AU-SHR-AU-2005-010748

PATIENT
  Age: 41 Year
  Sex: Female
  Weight: 77.5 kg

DRUGS (3)
  1. GM-CSF (9874) [Suspect]
     Indication: CROHN'S DISEASE
     Dosage: 6 A?G/KG, 1X/DAY
     Route: 058
     Dates: start: 20050602, end: 20050608
  2. VITAMIN B-12 [Concomitant]
     Indication: MALABSORPTION
     Dates: start: 19910101
  3. 6-MP [Concomitant]
     Dosage: 50 MG/D, UNK

REACTIONS (10)
  - BACK PAIN [None]
  - CHEST DISCOMFORT [None]
  - DEHYDRATION [None]
  - FEELING OF BODY TEMPERATURE CHANGE [None]
  - HEADACHE [None]
  - MYALGIA [None]
  - NEUTROPHIL COUNT INCREASED [None]
  - PAIN [None]
  - RENAL FAILURE ACUTE [None]
  - WHITE BLOOD CELL COUNT INCREASED [None]
